FAERS Safety Report 7954798-6 (Version None)
Quarter: 2011Q4

REPORT INFORMATION
  Report Type: 
  Country: None (occurrence: None)
  Receive Date: 20111202
  Receipt Date: 20111124
  Transmission Date: 20120403
  Serious: Yes (Other)
  Sender: FDA-Public Use
  Company Number: CN-ABBOTT-11P-035-0866593-00

PATIENT
  Age: 22 Year
  Sex: Male
  Weight: 51 kg

DRUGS (5)
  1. THALIDOMIDE [Concomitant]
     Indication: ANKYLOSING SPONDYLITIS
     Dosage: AT NIGHT
     Route: 048
     Dates: start: 20110615
  2. HUMIRA [Suspect]
     Indication: ANKYLOSING SPONDYLITIS
     Route: 058
     Dates: start: 20110615, end: 20110916
  3. SALLCYLAZOSULFAPYRIDINE [Concomitant]
     Indication: ANKYLOSING SPONDYLITIS
     Route: 048
     Dates: start: 20110615
  4. HUMIRA [Suspect]
     Dosage: EACH FOUR WEEKS
     Route: 058
     Dates: start: 20110916, end: 20111019
  5. METHOTREXATE [Concomitant]
     Indication: ANKYLOSING SPONDYLITIS
     Route: 048
     Dates: start: 20110615

REACTIONS (9)
  - LUNG NEOPLASM [None]
  - SARCOIDOSIS [None]
  - DISSEMINATED TUBERCULOSIS [None]
  - COUGH [None]
  - CONNECTIVE TISSUE DISORDER [None]
  - NEOPLASM [None]
  - DECREASED APPETITE [None]
  - BONE PAIN [None]
  - LYMPHADENOPATHY MEDIASTINAL [None]
